FAERS Safety Report 10333198 (Version 2)
Quarter: 2014Q3

REPORT INFORMATION
  Report Type: Spontaneous
  Country: US (occurrence: US)
  Receive Date: 20140722
  Receipt Date: 20140722
  Transmission Date: 20150326
  Serious: Yes (Hospitalization, Other)
  Sender: FDA-Public Use
  Company Number: US-009507513-2009SP023496

PATIENT
  Sex: Female
  Weight: 90.72 kg

DRUGS (2)
  1. NUVARING [Suspect]
     Active Substance: ETHINYL ESTRADIOL\ETONOGESTREL
     Indication: CONTRACEPTION
     Route: 067
     Dates: start: 200606, end: 200608
  2. COUMADIN [Suspect]
     Active Substance: WARFARIN SODIUM
     Indication: THROMBOSIS
     Dates: start: 200609, end: 20061005

REACTIONS (10)
  - Pneumonia [Unknown]
  - Breast cellulitis [Unknown]
  - Pulmonary infarction [Unknown]
  - Migraine [Unknown]
  - Deep vein thrombosis [Unknown]
  - Haematoma [Unknown]
  - Candida infection [Unknown]
  - Ovarian cyst [Unknown]
  - Pulmonary embolism [Unknown]
  - Necrosis [Unknown]

NARRATIVE: CASE EVENT DATE: 200609
